FAERS Safety Report 13367540 (Version 1)
Quarter: 2017Q1

REPORT INFORMATION
  Report Type: Spontaneous
  Country: US (occurrence: US)
  Receive Date: 20170323
  Receipt Date: 20170323
  Transmission Date: 20170429
  Serious: No
  Sender: FDA-Public Use
  Company Number: None

PATIENT
  Age: 67 Year
  Sex: Male
  Weight: 78.75 kg

DRUGS (3)
  1. TAMSULOSIN [Concomitant]
     Active Substance: TAMSULOSIN
  2. CALCIUM AND VITAMIN D [Concomitant]
     Active Substance: CALCIUM\VITAMIN D
  3. FRUIT SMOOTHIES [Suspect]
     Active Substance: DIMETHICONE\OCTINOXATE\OXYBENZONE
     Indication: PROPHYLAXIS
     Dosage: QUANTITY:1 1 APPLICATOR;?
     Route: 061
     Dates: start: 20170223, end: 20170223

REACTIONS (3)
  - Lip pain [None]
  - Lip swelling [None]
  - Product label issue [None]

NARRATIVE: CASE EVENT DATE: 20170223
